FAERS Safety Report 16162246 (Version 2)
Quarter: 2019Q2

REPORT INFORMATION
  Report Type: Report from Study
  Country: US (occurrence: US)
  Receive Date: 20190405
  Receipt Date: 20190422
  Transmission Date: 20190711
  Serious: Yes (Other)
  Sender: FDA-Public Use
  Company Number: US-EISAI MEDICAL RESEARCH-EC-2018-046092

PATIENT
  Sex: Male

DRUGS (5)
  1. LENVIMA [Suspect]
     Active Substance: LENVATINIB
     Route: 048
     Dates: start: 201810, end: 201902
  2. LENVIMA [Suspect]
     Active Substance: LENVATINIB
     Dosage: UNSPECIFIED DOSE CHANGE
     Route: 048
     Dates: start: 201902, end: 201902
  3. AFINITOR [Concomitant]
     Active Substance: EVEROLIMUS
     Indication: PRODUCT USED FOR UNKNOWN INDICATION
     Route: 048
     Dates: end: 20181006
  4. LENVIMA [Suspect]
     Active Substance: LENVATINIB
     Route: 048
     Dates: start: 20190223, end: 2019
  5. LENVIMA [Suspect]
     Active Substance: LENVATINIB
     Indication: RENAL CANCER
     Route: 048
     Dates: start: 201809, end: 20181006

REACTIONS (9)
  - Headache [Recovering/Resolving]
  - Epistaxis [Unknown]
  - Tumour marker increased [Not Recovered/Not Resolved]
  - Renal failure [Recovered/Resolved]
  - Abdominal pain upper [Recovering/Resolving]
  - Night sweats [Not Recovered/Not Resolved]
  - Blood pressure abnormal [Recovering/Resolving]
  - Migraine [Recovering/Resolving]
  - Vomiting [Recovered/Resolved]

NARRATIVE: CASE EVENT DATE: 2018
